FAERS Safety Report 7647893-2 (Version None)
Quarter: 2011Q3

REPORT INFORMATION
  Report Type: 
  Country: None (occurrence: None)
  Receive Date: 20110801
  Receipt Date: 20110721
  Transmission Date: 20111222
  Serious: Yes (Hospitalization)
  Sender: FDA-Public Use
  Company Number: US-ASTRAZENECA-2011SE43418

PATIENT
  Age: 53 Year
  Sex: Female
  Weight: 86.2 kg

DRUGS (6)
  1. CYMBALTA [Suspect]
     Route: 065
  2. LORTAB [Concomitant]
  3. SEROQUEL XR [Suspect]
     Indication: BIPOLAR DISORDER
     Route: 048
     Dates: start: 20080101
  4. XANAX [Concomitant]
  5. OXYCODONE HCL [Suspect]
     Route: 065
  6. NEXIUM [Concomitant]

REACTIONS (4)
  - ACTIVITIES OF DAILY LIVING IMPAIRED [None]
  - DYSPHEMIA [None]
  - AMNESIA [None]
  - TREMOR [None]
